FAERS Safety Report 5828834-7 (Version None)
Quarter: 2008Q3

REPORT INFORMATION
  Report Type: 
  Country: None (occurrence: None)
  Receive Date: 20080731
  Receipt Date: 20080724
  Transmission Date: 20090109
  Serious: Yes (Death)
  Sender: FDA-Public Use
  Company Number: IN-GENENTECH-265194

PATIENT
  Age: 48 Year
  Sex: Male

DRUGS (1)
  1. ACTIVASE [Suspect]
     Indication: ISCHAEMIC STROKE
     Dosage: 70 MG, UNK
     Route: 042
     Dates: start: 20080719, end: 20080719

REACTIONS (2)
  - BRAIN OEDEMA [None]
  - DEATH [None]
